FAERS Safety Report 7587939-3 (Version None)
Quarter: 2011Q3

REPORT INFORMATION
  Report Type: 
  Country: None (occurrence: None)
  Receive Date: 20110705
  Receipt Date: 20110628
  Transmission Date: 20111222
  Serious: No
  Sender: FDA-Public Use
  Company Number: US-PFIZER INC-2011144025

PATIENT
  Sex: Female

DRUGS (1)
  1. LYRICA [Suspect]
     Dosage: UNK

REACTIONS (5)
  - URTICARIA [None]
  - BLISTER [None]
  - RASH PRURITIC [None]
  - DYSPHAGIA [None]
  - OEDEMA PERIPHERAL [None]
